FAERS Safety Report 23661144 (Version 1)
Quarter: 2024Q1

REPORT INFORMATION
  Report Type: Spontaneous
  Country: AU (occurrence: None)
  Receive Date: 20240322
  Receipt Date: 20240322
  Transmission Date: 20240410
  Serious: Yes (Other)
  Sender: FDA-Public Use
  Company Number: AU-ROCHE-3509980

PATIENT
  Sex: Female

DRUGS (1)
  1. VABYSMO [Suspect]
     Active Substance: FARICIMAB\FARICIMAB-SVOA
     Indication: Neovascular age-related macular degeneration
     Dosage: PATIENT ON 4 MONTHLY LOADING DOSES FOLLOWED BY TREAT AND EXTEND
     Route: 065
     Dates: start: 20230518, end: 20231214

REACTIONS (4)
  - Breast cancer [Unknown]
  - Vitritis [Unknown]
  - Idiopathic orbital inflammation [Recovered/Resolved]
  - Keratic precipitates [Unknown]
